FAERS Safety Report 10165990 (Version 2)
Quarter: 2014Q2

REPORT INFORMATION
  Report Type: Spontaneous
  Country: SA (occurrence: SA)
  Receive Date: 20140511
  Receipt Date: 20140521
  Transmission Date: 20141212
  Serious: Yes (Other)
  Sender: FDA-Public Use
  Company Number: PHHY2014SA055996

PATIENT
  Age: 13 Year
  Sex: Male
  Weight: 32 kg

DRUGS (6)
  1. TRILEPTAL [Suspect]
     Indication: PARTIAL SEIZURES
     Dosage: 300 MG, BID
     Route: 048
     Dates: start: 20140406, end: 20140413
  2. TRILEPTAL [Suspect]
     Dosage: 600 MG, BID
     Route: 048
     Dates: start: 20140414
  3. DEPAKIN [Concomitant]
     Indication: PARTIAL SEIZURES
     Dosage: 750 MG, BID
  4. LACOSAMIDE [Concomitant]
     Indication: PARTIAL SEIZURES
     Dosage: 150-100MG, QD
  5. CLONAZEPAM [Concomitant]
     Indication: PARTIAL SEIZURES
     Dosage: 5 MG, BID
  6. PHENYTOIN [Concomitant]
     Indication: PARTIAL SEIZURES
     Dosage: UNK UKN, UNK

REACTIONS (4)
  - Convulsion [Unknown]
  - Strabismus [Not Recovered/Not Resolved]
  - Dysstasia [Not Recovered/Not Resolved]
  - Asthenia [Not Recovered/Not Resolved]
